FAERS Safety Report 10211041 (Version 2)
Quarter: 2014Q3

REPORT INFORMATION
  Report Type: Spontaneous
  Country: US (occurrence: None)
  Receive Date: 20140528
  Receipt Date: 20140707
  Transmission Date: 20150326
  Serious: Yes (Hospitalization)
  Sender: FDA-Public Use
  Company Number: UNT-2014-000444

PATIENT
  Age: 46 Year
  Sex: Female
  Weight: 77.1 kg

DRUGS (1)
  1. REMODULIN [Suspect]
     Active Substance: TREPROSTINIL
     Indication: PULMONARY ARTERIAL HYPERTENSION
     Dosage: 0.065UG/KG, CONTINUING, INTRAVENOUS
     Route: 042
     Dates: start: 20090918

REACTIONS (3)
  - Fluid retention [None]
  - Ascites [None]
  - Cardiac failure [None]

NARRATIVE: CASE EVENT DATE: 20140508
